FAERS Safety Report 6413196-7 (Version None)
Quarter: 2009Q4

REPORT INFORMATION
  Report Type: 
  Country: None (occurrence: None)
  Receive Date: 20091026
  Receipt Date: 20091012
  Transmission Date: 20100525
  Serious: Yes (Other)
  Sender: FDA-Public Use
  Company Number: PHHY2009IT44532

PATIENT
  Sex: Male

DRUGS (1)
  1. TAREG [Suspect]
     Route: 048

REACTIONS (1)
  - ASTHMA [None]
